FAERS Safety Report 22534339 (Version 2)
Quarter: 2023Q2

REPORT INFORMATION
  Report Type: Report from Study
  Country: ES (occurrence: ES)
  Receive Date: 20230608
  Receipt Date: 20230627
  Transmission Date: 20230722
  Serious: Yes (Life-Threatening, Hospitalization, Other)
  Sender: FDA-Public Use
  Company Number: ES-SA-2019SA198252

PATIENT
  Age: 40 Year
  Sex: Male
  Weight: 75 kg

DRUGS (8)
  1. ALEMTUZUMAB [Suspect]
     Active Substance: ALEMTUZUMAB
     Indication: Relapsing multiple sclerosis
     Dosage: 12 MG, QD
     Route: 041
     Dates: start: 20170109, end: 20170113
  2. ALEMTUZUMAB [Suspect]
     Active Substance: ALEMTUZUMAB
     Dosage: 12 MG, QD
     Route: 041
     Dates: start: 20180207, end: 20180209
  3. BACLOFEN [Concomitant]
     Active Substance: BACLOFEN
     Indication: Multiple sclerosis
     Dosage: UNK
     Route: 065
     Dates: start: 201601
  4. SOLIFENACIN [Concomitant]
     Active Substance: SOLIFENACIN
     Indication: Multiple sclerosis
     Dosage: UNK
     Route: 065
     Dates: start: 2010
  5. TAMSULOSIN HYDROCHLORIDE [Concomitant]
     Active Substance: TAMSULOSIN HYDROCHLORIDE
     Indication: Multiple sclerosis
     Dosage: UNK
     Route: 065
     Dates: start: 20140814
  6. TAMSULOSIN [Concomitant]
     Active Substance: TAMSULOSIN
     Indication: Multiple sclerosis
     Dosage: UNK
     Route: 065
     Dates: start: 20140814
  7. SOLIFENACINA [Concomitant]
     Indication: Multiple sclerosis
     Dosage: UNK
     Route: 065
     Dates: start: 2010
  8. BACLOFEN [Concomitant]
     Active Substance: BACLOFEN
     Indication: Multiple sclerosis
     Dosage: UNK
     Route: 065
     Dates: start: 201601

REACTIONS (4)
  - Haemophagocytic lymphohistiocytosis [Recovering/Resolving]
  - Immune thrombocytopenia [Recovered/Resolved]
  - Urinary tract infection [Recovered/Resolved]
  - Lymphopenia [Not Recovered/Not Resolved]

NARRATIVE: CASE EVENT DATE: 20190529
